FAERS Safety Report 19916567 (Version 1)
Quarter: 2021Q4

REPORT INFORMATION
  Report Type: Spontaneous
  Country: US (occurrence: US)
  Receive Date: 20211004
  Receipt Date: 20211004
  Transmission Date: 20220304
  Serious: Yes (Hospitalization)
  Sender: FDA-Public Use
  Company Number: None

PATIENT
  Sex: Female
  Weight: 53.1 kg

DRUGS (10)
  1. CAPECITABINE [Suspect]
     Active Substance: CAPECITABINE
     Indication: Colon cancer
     Route: 048
  2. PRAVASTATIN SODIUM [Concomitant]
     Active Substance: PRAVASTATIN SODIUM
  3. FERROUS SULFATE [Concomitant]
     Active Substance: FERROUS SULFATE
  4. GABAPENTIN [Concomitant]
     Active Substance: GABAPENTIN
  5. CITALOPRAM HYDROBROMIDE [Concomitant]
     Active Substance: CITALOPRAM HYDROBROMIDE
  6. ELIQUIS [Concomitant]
     Active Substance: APIXABAN
  7. SODIUM BICARBONATE [Concomitant]
     Active Substance: SODIUM BICARBONATE
  8. CARTIA XT [Concomitant]
     Active Substance: DILTIAZEM HYDROCHLORIDE
  9. RENAL-VITE [Concomitant]
  10. INJECTAFER [Concomitant]
     Active Substance: FERRIC CARBOXYMALTOSE

REACTIONS (1)
  - COVID-19 [None]
